FAERS Safety Report 6473909-5 (Version None)
Quarter: 2009Q4

REPORT INFORMATION
  Report Type: 
  Country: None (occurrence: None)
  Receive Date: 20091204
  Receipt Date: 20090826
  Transmission Date: 20100525
  Serious: Yes (Life-Threatening, Other)
  Sender: FDA-Public Use
  Company Number: A0803288A

PATIENT
  Age: 58 Year
  Sex: Male

DRUGS (3)
  1. LAMICTAL [Suspect]
     Dosage: 50MG PER DAY
     Route: 048
     Dates: start: 20081001
  2. VITAMINS [Concomitant]
  3. ATENOLOL [Concomitant]

REACTIONS (1)
  - MANIA [None]
